FAERS Safety Report 9924735 (Version 1)
Quarter: 2014Q1

REPORT INFORMATION
  Report Type: Spontaneous
  Country: US (occurrence: None)
  Receive Date: 20140224
  Receipt Date: 20140224
  Transmission Date: 20141002
  Serious: Yes (Disabling)
  Sender: FDA-Public Use
  Company Number: None

PATIENT
  Age: 49 Year
  Sex: Female
  Weight: 64.86 kg

DRUGS (1)
  1. LAMOTRIGINE [Suspect]
     Indication: AFFECTIVE DISORDER
     Dosage: 1 PILL ONCE DAILY
     Route: 048
     Dates: start: 20131124, end: 20140117

REACTIONS (7)
  - Pruritus generalised [None]
  - Rash erythematous [None]
  - Eye inflammation [None]
  - Hypersensitivity [None]
  - Fatigue [None]
  - Hypomania [None]
  - Sleep disorder [None]
